FAERS Safety Report 11352160 (Version 1)
Quarter: 2015Q3

REPORT INFORMATION
  Report Type: Spontaneous
  Country: US (occurrence: US)
  Receive Date: 20150807
  Receipt Date: 20150807
  Transmission Date: 20151125
  Serious: No
  Sender: FDA-Public Use
  Company Number: US-JNJFOC-20150714107

PATIENT
  Age: 77 Year
  Sex: Female
  Weight: 58.97 kg

DRUGS (7)
  1. BIOTIN [Concomitant]
     Active Substance: BIOTIN
     Indication: SKIN DISORDER
     Dosage: USING SINCE 2 YEARS
     Route: 065
  2. MENS ROGAINE EXTRA STRENGTH [Suspect]
     Active Substance: MINOXIDIL
     Route: 061
  3. DULOXETINE. [Concomitant]
     Active Substance: DULOXETINE
     Indication: ARTHRITIS
     Dosage: USING SINCE 2 YEARS
     Route: 065
  4. BIOTIN [Concomitant]
     Active Substance: BIOTIN
     Indication: HAIR DISORDER
     Dosage: USING SINCE 2 YEARS
     Route: 065
  5. LEVOTHYROXINE. [Concomitant]
     Active Substance: LEVOTHYROXINE
     Indication: THYROID DISORDER
     Dosage: USING SINCE 10 YEARS
     Route: 065
  6. BIOTIN [Concomitant]
     Active Substance: BIOTIN
     Indication: NAIL DISORDER
     Dosage: USING SINCE 2 YEARS
     Route: 065
  7. MENS ROGAINE EXTRA STRENGTH [Suspect]
     Active Substance: MINOXIDIL
     Indication: ALOPECIA
     Route: 061

REACTIONS (3)
  - Pruritus [Not Recovered/Not Resolved]
  - Alopecia [Not Recovered/Not Resolved]
  - Wrong patient received medication [Unknown]
